FAERS Safety Report 9097305 (Version 1)
Quarter: 2013Q1

REPORT INFORMATION
  Report Type: Report from Study
  Country: US (occurrence: US)
  Receive Date: 20130212
  Receipt Date: 20130212
  Transmission Date: 20140127
  Serious: Yes (Other)
  Sender: FDA-Public Use
  Company Number: US-JNJFOC-20130204249

PATIENT
  Age: 28 Year
  Sex: Female

DRUGS (3)
  1. REMICADE [Suspect]
     Indication: CROHN^S DISEASE
     Route: 042
  2. STELARA [Suspect]
     Indication: CROHN^S DISEASE
     Route: 058
  3. PAIN MEDICATION [Concomitant]
     Indication: PAIN

REACTIONS (5)
  - Intestinal resection [Unknown]
  - Cholecystectomy [Unknown]
  - Appendicectomy [Unknown]
  - Hernia [Unknown]
  - Crohn^s disease [Unknown]
